FAERS Safety Report 19651316 (Version 1)
Quarter: 2021Q3

REPORT INFORMATION
  Report Type: Spontaneous
  Country: US (occurrence: US)
  Receive Date: 20210803
  Receipt Date: 20210803
  Transmission Date: 20211014
  Serious: No
  Sender: FDA-Public Use
  Company Number: None

PATIENT
  Age: 62 Year
  Sex: Male

DRUGS (1)
  1. APIXABAN (APIXABAN 5MG TAB) [Suspect]
     Active Substance: APIXABAN
     Route: 048
     Dates: start: 20191230, end: 20210704

REACTIONS (6)
  - Gastric ulcer [None]
  - Haemorrhoids [None]
  - Acquired oesophageal web [None]
  - Upper gastrointestinal haemorrhage [None]
  - Haemoglobin decreased [None]
  - Hiatus hernia [None]

NARRATIVE: CASE EVENT DATE: 20210704
